FAERS Safety Report 26144363 (Version 1)
Quarter: 2025Q4

REPORT INFORMATION
  Report Type: Spontaneous
  Country: EU (occurrence: EU)
  Receive Date: 20251211
  Receipt Date: 20251211
  Transmission Date: 20260118
  Serious: Yes (Hospitalization)
  Sender: ABBVIE
  Company Number: None

PATIENT
  Age: 75 Year
  Sex: Female

DRUGS (13)
  1. IBRUTINIB [Suspect]
     Active Substance: IBRUTINIB
     Indication: Mantle cell lymphoma
     Route: 048
     Dates: start: 20170913, end: 202304
  2. MELPHALAN [Suspect]
     Active Substance: MELPHALAN
     Indication: Mantle cell lymphoma
     Dosage: TIME INTERVAL: 1 TOTAL
     Route: 042
     Dates: start: 20130128, end: 20130128
  3. OXALIPLATIN [Suspect]
     Active Substance: OXALIPLATIN
     Indication: Mantle cell lymphoma
     Route: 042
     Dates: start: 20120817, end: 20251130
  4. VINCRISTINE [Suspect]
     Active Substance: VINCRISTINE
     Indication: Mantle cell lymphoma
     Dosage: TIME INTERVAL: 1 TOTAL
     Route: 042
     Dates: start: 20120806, end: 20121227
  5. BORTEZOMIB [Suspect]
     Active Substance: BORTEZOMIB
     Indication: Mantle cell lymphoma
     Dosage: TIME INTERVAL: 1 CYCLICAL
     Route: 058
     Dates: start: 20160526, end: 20160731
  6. CARMUSTINE [Suspect]
     Active Substance: CARMUSTINE
     Indication: Mantle cell lymphoma
     Dosage: TIME INTERVAL: 1 TOTAL
     Route: 042
     Dates: start: 20130123, end: 20130123
  7. RITUXIMAB [Suspect]
     Active Substance: RITUXIMAB
     Indication: Mantle cell lymphoma
     Route: 042
     Dates: start: 20120820, end: 20121227
  8. RITUXIMAB [Suspect]
     Active Substance: RITUXIMAB
     Indication: Mantle cell lymphoma
     Route: 042
     Dates: start: 20160708, end: 20160728
  9. CYTARABINE [Suspect]
     Active Substance: CYTARABINE
     Indication: Mantle cell lymphoma
     Dosage: TIME INTERVAL: 1 CYCLICAL: DOSAGE: 2 G/M^2
     Route: 042
     Dates: start: 20160528, end: 20160730
  10. CYTARABINE [Suspect]
     Active Substance: CYTARABINE
     Indication: Mantle cell lymphoma
     Dosage: TIME INTERVAL: 1 CYCLICAL: DOSAGE: 2 G/M^2
     Route: 042
     Dates: start: 20120818, end: 20130126
  11. TECARTUS [Suspect]
     Active Substance: BREXUCABTAGENE AUTOLEUCEL
     Indication: Mantle cell lymphoma
     Dosage: TIME INTERVAL: 1 TOTAL
     Route: 042
     Dates: start: 20230817, end: 20230817
  12. CYCLOPHOSPHAMIDE [Suspect]
     Active Substance: CYCLOPHOSPHAMIDE
     Indication: Mantle cell lymphoma
     Dosage: TIME INTERVAL: 1 TOTAL
     Route: 042
     Dates: start: 20120806, end: 20121227
  13. ETOPOSIDE [Suspect]
     Active Substance: ETOPOSIDE
     Indication: Mantle cell lymphoma
     Route: 042
     Dates: start: 20130123, end: 20130127

REACTIONS (1)
  - Anal squamous cell carcinoma [Not Recovered/Not Resolved]

NARRATIVE: CASE EVENT DATE: 20251106
